FAERS Safety Report 19588486 (Version 1)
Quarter: 2021Q3

REPORT INFORMATION
  Report Type: Report from Study
  Country: AT (occurrence: AT)
  Receive Date: 20210721
  Receipt Date: 20210721
  Transmission Date: 20211014
  Serious: Yes (Other)
  Sender: FDA-Public Use
  Company Number: AT-TAKEDA-2021TUS034761

PATIENT
  Age: 14 Year
  Sex: Male

DRUGS (4)
  1. HUMAN IMMUNOGLOBULIN; HYALURONIDASE [Suspect]
     Active Substance: HUMAN IMMUNOGLOBULIN G\HYALURONIDASE RECOMBINANT HUMAN
     Dosage: 20 GRAM, MONTHLY
     Route: 058
     Dates: start: 20210525
  2. HUMAN IMMUNOGLOBULIN; HYALURONIDASE [Suspect]
     Active Substance: HUMAN IMMUNOGLOBULIN G\HYALURONIDASE RECOMBINANT HUMAN
     Dosage: UNK
     Route: 065
  3. HUMAN IMMUNOGLOBULIN; HYALURONIDASE [Suspect]
     Active Substance: HUMAN IMMUNOGLOBULIN G\HYALURONIDASE RECOMBINANT HUMAN
     Indication: PRIMARY IMMUNODEFICIENCY SYNDROME
     Dosage: 20 GRAM, MONTHLY
     Route: 058
     Dates: start: 20210525
  4. HUMAN IMMUNOGLOBULIN; HYALURONIDASE [Suspect]
     Active Substance: HUMAN IMMUNOGLOBULIN G\HYALURONIDASE RECOMBINANT HUMAN
     Dosage: UNK
     Route: 065

REACTIONS (8)
  - Headache [Unknown]
  - Blood disorder [Unknown]
  - Vitreous floaters [Unknown]
  - Heart rate increased [Unknown]
  - Erythema [Unknown]
  - Dizziness [Unknown]
  - Photophobia [Unknown]
  - Capillary leak syndrome [Unknown]
